FAERS Safety Report 6138538-1 (Version None)
Quarter: 2009Q1

REPORT INFORMATION
  Report Type: 
  Country: None (occurrence: None)
  Receive Date: 20090327
  Receipt Date: 20090327
  Transmission Date: 20090719
  Serious: Yes (Hospitalization)
  Sender: FDA-Public Use
  Company Number: None

PATIENT
  Age: 28 Year
  Sex: Male
  Weight: 68.0396 kg

DRUGS (1)
  1. LAMICTAL [Suspect]
     Indication: BIPOLAR DISORDER
     Dosage: 100MG  TWICE DAILY
     Dates: start: 20080121, end: 20090301

REACTIONS (5)
  - DIZZINESS [None]
  - IMPAIRED WORK ABILITY [None]
  - MIGRAINE [None]
  - MUSCLE ATROPHY [None]
  - NECK PAIN [None]
